FAERS Safety Report 25766500 (Version 1)
Quarter: 2025Q3

REPORT INFORMATION
  Report Type: Spontaneous
  Country: US (occurrence: None)
  Receive Date: 20250904
  Receipt Date: 20250904
  Transmission Date: 20251020
  Serious: No
  Sender: FDA-CTU
  Company Number: None

PATIENT
  Age: 88 Year
  Sex: Female

DRUGS (1)
  1. ZORYVE CREAM [Suspect]
     Active Substance: ROFLUMILAST
     Indication: Psoriasis
     Dates: start: 202506

REACTIONS (1)
  - Orthostatic hypotension [None]
